FAERS Safety Report 5015335-1 (Version None)
Quarter: 2006Q2

REPORT INFORMATION
  Report Type: 
  Country: None (occurrence: None)
  Receive Date: 20060530
  Receipt Date: 20060530
  Transmission Date: 20061013
  Serious: Yes (Hospitalization)
  Sender: FDA-Public Use
  Company Number: None

PATIENT
  Age: 84 Year
  Sex: Male
  Weight: 63.05 kg

DRUGS (1)
  1. RISPERIDONE [Suspect]
     Indication: HALLUCINATION
     Dosage: 0.5 MG QHS
     Route: 048
     Dates: start: 20060419, end: 20060424

REACTIONS (3)
  - DEPRESSED LEVEL OF CONSCIOUSNESS [None]
  - HALLUCINATION [None]
  - MENTAL STATUS CHANGES [None]
